FAERS Safety Report 4433092-4 (Version None)
Quarter: 2004Q3

REPORT INFORMATION
  Report Type: 
  Country: None (occurrence: None)
  Receive Date: 20040823
  Receipt Date: 20040817
  Transmission Date: 20050211
  Serious: Yes (Hospitalization)
  Sender: FDA-Public Use
  Company Number: HQWYE231012AUG04

PATIENT
  Age: 56 Year
  Sex: Male
  Weight: 65.83 kg

DRUGS (5)
  1. RAPAMUNE [Suspect]
     Indication: PROPHYLAXIS AGAINST TRANSPLANT REJECTION
     Dosage: 5 MG 1X PER 1 DAY, ORAL
     Route: 048
     Dates: start: 20040728, end: 20040730
  2. PREDNISONE [Concomitant]
  3. CYCLOSPORINE [Concomitant]
  4. INSULIN [Concomitant]
  5. LOPRESSOR [Concomitant]

REACTIONS (1)
  - ILEAL PERFORATION [None]
